FAERS Safety Report 10466981 (Version 1)
Quarter: 2014Q3

REPORT INFORMATION
  Report Type: Spontaneous
  Country: BE (occurrence: BE)
  Receive Date: 20140922
  Receipt Date: 20140922
  Transmission Date: 20150326
  Serious: Yes (Other)
  Sender: FDA-Public Use
  Company Number: BE-SA-2014SA124877

PATIENT
  Age: 77 Year
  Sex: Female

DRUGS (3)
  1. ENOXAPARIN SODIUM. [Suspect]
     Active Substance: ENOXAPARIN SODIUM
     Indication: PROPHYLAXIS
     Route: 065
  2. GLAZIDIM [Concomitant]
     Active Substance: CEFTAZIDIME
     Indication: ACUTE RESPIRATORY DISTRESS SYNDROME
  3. VANCOMYCIN [Concomitant]
     Active Substance: VANCOMYCIN
     Indication: ACUTE RESPIRATORY DISTRESS SYNDROME

REACTIONS (2)
  - Device failure [Unknown]
  - Thrombocytopenia [Recovered/Resolved]
